FAERS Safety Report 13571909 (Version 1)
Quarter: 2017Q2

REPORT INFORMATION
  Report Type: Spontaneous
  Country: US (occurrence: US)
  Receive Date: 20170522
  Receipt Date: 20170522
  Transmission Date: 20170830
  Serious: Yes (Hospitalization, Other)
  Sender: FDA-Public Use
  Company Number: None

PATIENT
  Age: 60 Year
  Sex: Male
  Weight: 100.2 kg

DRUGS (1)
  1. SULFAMETHIZOLE/TRIMETHOPRIM [Suspect]
     Active Substance: SULFAMETHOXAZOLE\TRIMETHOPRIM
     Indication: INFECTION PROPHYLAXIS
     Route: 048
     Dates: start: 20161031, end: 20161106

REACTIONS (3)
  - Blood urea increased [None]
  - Renal failure [None]
  - Blood creatine increased [None]

NARRATIVE: CASE EVENT DATE: 20161106
